FAERS Safety Report 21003717 (Version 1)
Quarter: 2022Q2

REPORT INFORMATION
  Report Type: Spontaneous
  Country: US (occurrence: None)
  Receive Date: 20220623
  Receipt Date: 20220623
  Transmission Date: 20220720
  Serious: Yes (Life-Threatening, Hospitalization)
  Sender: FDA-Public Use
  Company Number: None

PATIENT
  Age: 45 Year
  Sex: Female
  Weight: 83.7 kg

DRUGS (7)
  1. JARDIANCE [Suspect]
     Active Substance: EMPAGLIFLOZIN
     Indication: Diabetes mellitus
     Route: 048
  2. GABAPENTIN [Concomitant]
     Active Substance: GABAPENTIN
  3. Venafaxine [Concomitant]
  4. INSULIN LISPRO [Concomitant]
     Active Substance: INSULIN LISPRO
  5. LANTUS [Concomitant]
     Active Substance: INSULIN GLARGINE
  6. TYLENOL [Concomitant]
     Active Substance: ACETAMINOPHEN
  7. MELATONIN [Concomitant]
     Active Substance: MELATONIN

REACTIONS (13)
  - Feeling abnormal [None]
  - Headache [None]
  - Nausea [None]
  - Abdominal pain upper [None]
  - Vomiting [None]
  - Diabetic ketoacidosis [None]
  - Dehydration [None]
  - Vascular procedure complication [None]
  - Contusion [None]
  - Skin lesion [None]
  - Pain [None]
  - Adverse drug reaction [None]
  - Drug interaction [None]

NARRATIVE: CASE EVENT DATE: 20220606
